FAERS Safety Report 23649564 (Version 1)
Quarter: 2024Q1

REPORT INFORMATION
  Report Type: Spontaneous
  Country: CN (occurrence: CN)
  Receive Date: 20240319
  Receipt Date: 20240319
  Transmission Date: 20240409
  Serious: Yes (Other)
  Sender: FDA-Public Use
  Company Number: CN-002147023-NVSC2024CN059409

PATIENT
  Age: 52 Year
  Sex: Female
  Weight: 56 kg

DRUGS (1)
  1. TOBRAMYCIN [Suspect]
     Active Substance: TOBRAMYCIN
     Indication: Conjunctivitis
     Dosage: 1 DRP, TID
     Route: 047
     Dates: start: 20240305, end: 20240308

REACTIONS (4)
  - Corneal exfoliation [Recovering/Resolving]
  - Ocular discomfort [Recovered/Resolved]
  - Sensation of foreign body [Recovered/Resolved]
  - Conjunctival hyperaemia [Unknown]

NARRATIVE: CASE EVENT DATE: 20240308
